FAERS Safety Report 8540161-6 (Version None)
Quarter: 2012Q3

REPORT INFORMATION
  Report Type: 
  Country: None (occurrence: None)
  Receive Date: 20120726
  Receipt Date: 20120719
  Transmission Date: 20120928
  Serious: Yes (Hospitalization, Other)
  Sender: FDA-Public Use
  Company Number: PT-ROCHE-1090539

PATIENT
  Age: 39 Year
  Sex: Male

DRUGS (2)
  1. HERCEPTIN [Suspect]
     Indication: GASTRIC CANCER
     Dosage: PERFUSION DURING 90 MINUTES
     Route: 042
  2. HERCEPTIN [Suspect]
     Dosage: PERFUSION
     Route: 042

REACTIONS (3)
  - UPPER LIMB FRACTURE [None]
  - ACCIDENT [None]
  - CONVULSION [None]
